FAERS Safety Report 7204989-7 (Version None)
Quarter: 2010Q4

REPORT INFORMATION
  Report Type: 
  Country: None (occurrence: None)
  Receive Date: 20101230
  Receipt Date: 20101222
  Transmission Date: 20110411
  Serious: Yes (Death)
  Sender: FDA-Public Use
  Company Number: JP-PFIZER INC-2010152526

PATIENT
  Age: 62 Year
  Sex: Female

DRUGS (4)
  1. LYRICA [Suspect]
     Indication: SCIATICA
     Dosage: 75 MG, 2X/DAY
     Route: 048
     Dates: start: 20101110
  2. SOLANAX [Suspect]
     Dosage: 0.4 MG/DAY
     Route: 048
     Dates: start: 20100924
  3. VOLTAREN [Concomitant]
     Dosage: 50 MG, AS NEEDED
  4. SELBEX [Concomitant]
     Dosage: 1 CAPSULE 3 TIMES DAILY
     Route: 048

REACTIONS (1)
  - COMPLETED SUICIDE [None]
